FAERS Safety Report 4313884-2 (Version None)
Quarter: 2004Q1

REPORT INFORMATION
  Report Type: 
  Country: None (occurrence: None)
  Receive Date: 20040302
  Receipt Date: 20030522
  Transmission Date: 20041129
  Serious: Yes (Disabling)
  Sender: FDA-Public Use
  Company Number: 002#4#2003-00285(0)

PATIENT
  Age: 52 Year
  Sex: Female

DRUGS (5)
  1. REGLAN [Suspect]
     Indication: DIABETIC GASTROPARESIS
     Dosage: 20 MG, 2 IN 1 D, ORAL
     Route: 048
     Dates: start: 20010130, end: 20010612
  2. REGLAN [Suspect]
     Indication: GASTROOESOPHAGEAL REFLUX DISEASE
     Dosage: 20 MG, 2 IN 1 D, ORAL
     Route: 048
     Dates: start: 20010130, end: 20010612
  3. LANSOPRAZOLE [Concomitant]
  4. LISINOPRIL [Concomitant]
  5. FEXOFENADINE HCL [Concomitant]

REACTIONS (5)
  - DEPRESSION [None]
  - DYSTONIA [None]
  - EXTRAPYRAMIDAL DISORDER [None]
  - HYPERKINESIA [None]
  - TARDIVE DYSKINESIA [None]
